FAERS Safety Report 7455882-6 (Version None)
Quarter: 2011Q2

REPORT INFORMATION
  Report Type: 
  Country: None (occurrence: None)
  Receive Date: 20110503
  Receipt Date: 20110426
  Transmission Date: 20111010
  Serious: Yes (Hospitalization)
  Sender: FDA-Public Use
  Company Number: A0925207A

PATIENT
  Sex: Female

DRUGS (2)
  1. NARDIL [Suspect]
     Route: 048
     Dates: start: 20040101
  2. PARNATE [Suspect]
     Route: 048

REACTIONS (6)
  - AMNESIA [None]
  - DEPRESSION [None]
  - HALLUCINATION [None]
  - CONFUSIONAL STATE [None]
  - INSOMNIA [None]
  - SOCIAL PROBLEM [None]
